FAERS Safety Report 11760476 (Version 5)
Quarter: 2016Q1

REPORT INFORMATION
  Report Type: Spontaneous
  Country: JP (occurrence: JP)
  Receive Date: 20151120
  Receipt Date: 20160330
  Transmission Date: 20160525
  Serious: Yes (Hospitalization, Other)
  Sender: FDA-Public Use
  Company Number: JP-GILEAD-2015-0181692

PATIENT
  Age: 71 Year
  Sex: Male
  Weight: 57.8 kg

DRUGS (5)
  1. URSO [Concomitant]
     Active Substance: URSODIOL
     Dosage: 600 MG, UNK
     Route: 065
     Dates: end: 20150819
  2. SOVALDI [Suspect]
     Active Substance: SOFOSBUVIR
     Indication: CHRONIC HEPATITIS C
     Dosage: 400 MG, UNK
     Route: 048
     Dates: start: 20150820, end: 20151017
  3. COPEGUS [Concomitant]
     Active Substance: RIBAVIRIN
     Indication: CHRONIC HEPATITIS C
     Dosage: 600 MG, UNK
     Route: 048
     Dates: start: 20150820, end: 20151017
  4. ADALAT [Concomitant]
     Active Substance: NIFEDIPINE
     Indication: HYPERTENSION
     Dosage: 40 MG, UNK
     Route: 048
     Dates: start: 20130411
  5. URSO [Concomitant]
     Active Substance: URSODIOL
     Dosage: 600 MG, UNK
     Route: 065
     Dates: start: 20150820, end: 20150903

REACTIONS (3)
  - Constipation [Recovered/Resolved]
  - Helicobacter infection [Recovered/Resolved]
  - Gastrointestinal perforation [Recovered/Resolved]

NARRATIVE: CASE EVENT DATE: 20150827
